FAERS Safety Report 7928004 (Version 6)
Quarter: 2013Q3

REPORT INFORMATION
  Report Type: Report from Study
  Country: US (occurrence: US)
  Receive Date: 20110503
  Receipt Date: 20130924
  Transmission Date: 20140515
  Serious: Yes (Hospitalization)
  Sender: FDA-Public Use
  Company Number: US-BRISTOL-MYERS SQUIBB COMPANY-15565591

PATIENT
  Age: 74 Year
  Sex: Male

DRUGS (32)
  1. IPILIMUMAB [Suspect]
     Indication: MALIGNANT MELANOMA
     Dosage: LAST DOSE ON 08-FEB-2011?CYCLICAL
     Route: 042
     Dates: start: 20110118, end: 20110407
  2. ALLOPURINOL [Concomitant]
     Route: 048
  3. ASPIRIN [Concomitant]
     Route: 048
  4. DILTIAZEM HCL [Concomitant]
     Route: 048
  5. IMODIUM [Concomitant]
     Route: 048
  6. PREDNISONE [Concomitant]
     Route: 048
  7. PROTONIX [Concomitant]
     Route: 048
  8. PLAVIX [Concomitant]
  9. K-DUR [Concomitant]
  10. ANDROGEL [Concomitant]
  11. CARVEDILOL [Concomitant]
  12. INSULIN SLIDING SCALE [Concomitant]
  13. ASPIRIN [Concomitant]
     Route: 048
  14. DIOVAN HCT [Concomitant]
     Dosage: 1 DF: 160/12.5 MG
     Route: 048
  15. GLUCOSAMINE [Concomitant]
     Route: 048
  16. MVI [Concomitant]
     Dosage: 1DF:1TAB
     Route: 048
  17. CELEBREX [Concomitant]
     Route: 048
  18. VYTORIN [Concomitant]
     Dosage: 1DF:10/40MG
     Route: 048
  19. DIOVAN [Concomitant]
     Route: 048
  20. ACIPHEX [Concomitant]
  21. HYDROCORTISONE [Concomitant]
     Dosage: CREAM?10MG AND 5MG
  22. HYDROCHLOROTHIAZIDE [Concomitant]
     Route: 048
  23. CHONDROITIN [Concomitant]
     Route: 048
  24. ACYCLOVIR [Concomitant]
     Route: 048
  25. PREVACID [Concomitant]
     Route: 048
  26. BENADRYL [Concomitant]
     Route: 048
  27. ZOFRAN [Concomitant]
     Route: 048
  28. ACIPHEX [Concomitant]
     Route: 048
  29. COMPAZINE [Concomitant]
  30. LOMOTIL [Concomitant]
     Route: 048
  31. GLYBURIDE [Concomitant]
     Route: 048
  32. LASIX [Concomitant]
     Route: 048

REACTIONS (4)
  - Large intestine perforation [Recovered/Resolved]
  - Haematochezia [Recovered/Resolved]
  - Dehydration [Recovered/Resolved]
  - Diarrhoea [Recovered/Resolved]
